FAERS Safety Report 8370800-4 (Version None)
Quarter: 2012Q2

REPORT INFORMATION
  Report Type: 
  Country: None (occurrence: None)
  Receive Date: 20120518
  Receipt Date: 20120409
  Transmission Date: 20120825
  Serious: Yes (Other)
  Sender: FDA-Public Use
  Company Number: US-ALEXION-A201200405

PATIENT
  Sex: Female
  Weight: 74.7 kg

DRUGS (9)
  1. SOLIRIS [Suspect]
     Dosage: 900 MG, Q2W
     Route: 042
     Dates: start: 20100216, end: 20110601
  2. SOLIRIS [Suspect]
     Dosage: 1200 MG, Q12DAYS
     Dates: start: 20110701
  3. SOLIRIS [Suspect]
     Dosage: 900 MG, Q10DAYS
     Route: 042
     Dates: start: 20120309
  4. FOLIC ACID [Concomitant]
     Dosage: 2 MG, QD
     Route: 048
  5. SODIUM CHLORIDE [Concomitant]
     Dosage: 250 ML, POST SOLIRIS
     Route: 042
  6. SOLIRIS [Suspect]
     Indication: PAROXYSMAL NOCTURNAL HAEMOGLOBINURIA
     Dosage: UNK
     Route: 042
     Dates: start: 20100101
  7. SOLIRIS [Suspect]
     Dosage: 1200 MG, Q10DAYS
     Route: 042
     Dates: start: 20111208
  8. SOLIRIS [Suspect]
     Dosage: 900 MG, Q12DAYS
     Route: 042
     Dates: start: 20120405
  9. EMLA [Concomitant]
     Dosage: 2.5%-2.5%, PRN, PRIOR TO PROCEDURE
     Route: 061

REACTIONS (8)
  - PAROXYSMAL NOCTURNAL HAEMOGLOBINURIA [None]
  - MATERNAL EXPOSURE DURING PREGNANCY [None]
  - HAEMOLYSIS [None]
  - ARTHRALGIA [None]
  - HAEMATOCRIT DECREASED [None]
  - CONDITION AGGRAVATED [None]
  - FATIGUE [None]
  - WEIGHT INCREASED [None]
